FAERS Safety Report 13152142 (Version 3)
Quarter: 2017Q4

REPORT INFORMATION
  Report Type: Spontaneous
  Country: US (occurrence: US)
  Receive Date: 20170125
  Receipt Date: 20171218
  Transmission Date: 20180320
  Serious: Yes (Other)
  Sender: FDA-Public Use
  Company Number: US-IMPAX LABORATORIES, INC-2017-IPXL-00104

PATIENT
  Age: 14 Year
  Sex: Female
  Weight: 50 kg

DRUGS (4)
  1. LAMOTRIGINE ODT [Suspect]
     Active Substance: LAMOTRIGINE
     Dosage: 200 MG, DAILY, 1 TABLET
     Route: 048
     Dates: start: 2016, end: 2016
  2. DIVALPROEX SODIUM ER [Suspect]
     Active Substance: DIVALPROEX SODIUM
     Indication: EPILEPSY
     Dosage: 250 MG IN THE MORNING AND 250 MG IN NIG
     Route: 065
     Dates: start: 20160527, end: 2016
  3. LAMOTRIGINE ODT [Suspect]
     Active Substance: LAMOTRIGINE
     Dosage: 100 MG, UNK
     Route: 065
     Dates: start: 2016, end: 2016
  4. LAMOTRIGINE ODT [Suspect]
     Active Substance: LAMOTRIGINE
     Indication: EPILEPSY
     Dosage: 225 MG IN THE NIGHT AND 225 MG IN AFTERNOON
     Route: 065
     Dates: start: 2016, end: 2016

REACTIONS (14)
  - Petit mal epilepsy [Recovered/Resolved]
  - Somnolence [Recovered/Resolved]
  - Diplopia [Recovered/Resolved]
  - Feeding disorder [Recovered/Resolved]
  - Malaise [Unknown]
  - Product use issue [Unknown]
  - Pain [Recovered/Resolved]
  - Fatigue [Recovered/Resolved]
  - Insomnia [Recovered/Resolved]
  - Headache [Recovered/Resolved]
  - Prescribed overdose [Unknown]
  - Drug ineffective [Unknown]
  - Vomiting [Recovered/Resolved]
  - Laziness [Recovered/Resolved]

NARRATIVE: CASE EVENT DATE: 2016
